FAERS Safety Report 6627925-0 (Version None)
Quarter: 2010Q1

REPORT INFORMATION
  Report Type: 
  Country: None (occurrence: None)
  Receive Date: 20100311
  Receipt Date: 20090819
  Transmission Date: 20100710
  Serious: No
  Sender: FDA-Public Use
  Company Number: A0775562A

PATIENT
  Age: 39 Year
  Sex: Male

DRUGS (5)
  1. NICORETTE [Suspect]
     Dates: start: 20090323, end: 20090323
  2. ROPINIROLE [Concomitant]
     Route: 048
  3. NEURONTIN [Concomitant]
     Route: 048
  4. MIRAPEX [Concomitant]
     Route: 048
  5. KLONOPIN [Concomitant]
     Route: 048

REACTIONS (4)
  - ABDOMINAL PAIN [None]
  - GASTROINTESTINAL DISORDER [None]
  - HYPERSENSITIVITY [None]
  - MALAISE [None]
